FAERS Safety Report 23973004 (Version 4)
Quarter: 2024Q4

REPORT INFORMATION
  Report Type: Spontaneous
  Country: US (occurrence: US)
  Receive Date: 20240613
  Receipt Date: 20241211
  Transmission Date: 20250115
  Serious: Yes (Hospitalization)
  Sender: PFIZER
  Company Number: US-PFIZER INC-PV202400077169

PATIENT
  Age: 57 Year
  Sex: Female
  Weight: 69.388 kg

DRUGS (4)
  1. INLYTA [Suspect]
     Active Substance: AXITINIB
     Indication: Clear cell renal cell carcinoma
     Dosage: 5MG TABLET EVERY 12HOURS, TOTAL DAILY DOSE IS 10 MG
     Route: 048
     Dates: start: 20240430
  2. INLYTA [Suspect]
     Active Substance: AXITINIB
     Indication: Renal cancer
     Dosage: 3 MG, 2X/DAY
     Route: 048
  3. PEMBROLIZUMAB [Suspect]
     Active Substance: PEMBROLIZUMAB
     Indication: Clear cell renal cell carcinoma
     Dosage: Q21D CYCLE
     Dates: start: 20240430
  4. PEMBROLIZUMAB [Suspect]
     Active Substance: PEMBROLIZUMAB
     Indication: Renal cancer

REACTIONS (1)
  - Pneumonia [Unknown]
